FAERS Safety Report 10203573 (Version 1)
Quarter: 2014Q2

REPORT INFORMATION
  Report Type: Spontaneous
  Country: US (occurrence: US)
  Receive Date: 20140529
  Receipt Date: 20140529
  Transmission Date: 20141212
  Serious: No
  Sender: FDA-Public Use
  Company Number: US-MYLANLABS-2013S1015894

PATIENT
  Age: 47 Year
  Sex: Male
  Weight: 92.99 kg

DRUGS (3)
  1. ZOLPIDEM TARTRATE TABLETS [Suspect]
     Indication: INSOMNIA
     Route: 048
     Dates: start: 200909
  2. COUMADIN SODIUM [Concomitant]
     Route: 048
     Dates: start: 2009
  3. METOPROLOL [Concomitant]
     Indication: BLOOD PRESSURE
     Route: 048

REACTIONS (1)
  - Somnolence [Not Recovered/Not Resolved]
